FAERS Safety Report 7828075-8 (Version None)
Quarter: 2011Q4

REPORT INFORMATION
  Report Type: 
  Country: None (occurrence: None)
  Receive Date: 20111020
  Receipt Date: 20111010
  Transmission Date: 20120403
  Serious: Yes (Death, Hospitalization)
  Sender: FDA-Public Use
  Company Number: US-SANOFI-AVENTIS-2011SA066092

PATIENT
  Age: 69 Year
  Sex: Female

DRUGS (1)
  1. ENOXAPARIN SODIUM [Suspect]
     Indication: PROPHYLAXIS
     Route: 058

REACTIONS (12)
  - HEMIPARESIS [None]
  - INTRACRANIAL PRESSURE INCREASED [None]
  - PLATELET COUNT DECREASED [None]
  - NAUSEA [None]
  - CEREBRAL INFARCTION [None]
  - HEPARIN-INDUCED THROMBOCYTOPENIA [None]
  - PARTIAL SEIZURES [None]
  - BRAIN OEDEMA [None]
  - CEREBRAL HAEMORRHAGE [None]
  - HEADACHE [None]
  - MUSCULAR WEAKNESS [None]
  - INTRACRANIAL VENOUS SINUS THROMBOSIS [None]
